FAERS Safety Report 7731143-2 (Version None)
Quarter: 2011Q3

REPORT INFORMATION
  Report Type: 
  Country: None (occurrence: None)
  Receive Date: 20110906
  Receipt Date: 20110906
  Transmission Date: 20111222
  Serious: No
  Sender: FDA-Public Use
  Company Number: None

PATIENT
  Age: 45 Year
  Sex: Female
  Weight: 61.234 kg

DRUGS (1)
  1. CYMBALTA [Suspect]
     Indication: NERVE INJURY
     Dosage: 60 MG
     Route: 048
     Dates: start: 20110316, end: 20110719

REACTIONS (6)
  - HEADACHE [None]
  - VOMITING [None]
  - FLUID INTAKE REDUCED [None]
  - NAUSEA [None]
  - HYPOPHAGIA [None]
  - BLOOD SODIUM DECREASED [None]
